FAERS Safety Report 13362117 (Version 1)
Quarter: 2017Q1

REPORT INFORMATION
  Report Type: Spontaneous
  Country: US (occurrence: US)
  Receive Date: 20170321
  Receipt Date: 20170321
  Transmission Date: 20170429
  Serious: No
  Sender: FDA-Public Use
  Company Number: None

PATIENT
  Age: 53 Year
  Sex: Female

DRUGS (1)
  1. AMPYRA [Suspect]
     Active Substance: DALFAMPRIDINE
     Indication: MULTIPLE SCLEROSIS
     Route: 048
     Dates: start: 20140517, end: 20170222

REACTIONS (7)
  - Laboratory test abnormal [None]
  - CD4/CD8 ratio decreased [None]
  - B-lymphocyte count decreased [None]
  - Blood immunoglobulin M decreased [None]
  - T-lymphocyte count increased [None]
  - Lymphocyte count increased [None]
  - Blood urea increased [None]

NARRATIVE: CASE EVENT DATE: 20170308
